FAERS Safety Report 9338733 (Version 2)
Quarter: 2013Q3

REPORT INFORMATION
  Report Type: Spontaneous
  Country: US (occurrence: US)
  Receive Date: 20130610
  Receipt Date: 20130704
  Transmission Date: 20140515
  Serious: Yes (Death)
  Sender: FDA-Public Use
  Company Number: US-PFIZER INC-2013172186

PATIENT
  Age: 71 Year
  Sex: Male

DRUGS (2)
  1. SUTENT [Suspect]
     Indication: MALIGNANT URINARY TRACT NEOPLASM
     Dosage: 37.5 MG, 1X/DAY (28D Q 6 W)
     Route: 048
     Dates: start: 20130410, end: 20130503
  2. SUTENT [Suspect]
     Indication: RENAL CELL CARCINOMA
     Dosage: 37.5 MG (12.5 MG CAPS X 3) DAILY
     Dates: start: 20130424

REACTIONS (1)
  - Death [Fatal]
